FAERS Safety Report 7816407-6 (Version None)
Quarter: 2011Q4

REPORT INFORMATION
  Report Type: 
  Country: None (occurrence: None)
  Receive Date: 20111017
  Receipt Date: 20111012
  Transmission Date: 20120403
  Serious: Yes (Hospitalization)
  Sender: FDA-Public Use
  Company Number: PL-BRISTOL-MYERS SQUIBB COMPANY-15937519

PATIENT
  Age: 41 Year
  Sex: Female

DRUGS (1)
  1. YERVOY [Suspect]
     Dosage: 29JUL11-29JUL11,LAST DOSE ON 30SEP11,NO OF ADMINISTRATIONS 4
     Route: 042
     Dates: start: 20110729

REACTIONS (8)
  - CHILLS [None]
  - DYSPNOEA [None]
  - ASTHENIA [None]
  - BONE PAIN [None]
  - SKIN LESION [None]
  - ANXIETY [None]
  - TACHYCARDIA [None]
  - PYREXIA [None]
